FAERS Safety Report 5507413-5 (Version None)
Quarter: 2007Q4

REPORT INFORMATION
  Report Type: 
  Country: None (occurrence: None)
  Receive Date: 20071024
  Receipt Date: 20070629
  Transmission Date: 20080405
  Serious: Yes (Other)
  Sender: FDA-Public Use
  Company Number: US-JNJFOC-20070706013

PATIENT
  Age: 53 Year
  Sex: Female

DRUGS (5)
  1. FLEXERIL [Suspect]
     Indication: BACK PAIN
     Dosage: FOUR TABLETS (STRENGTH UNSPECIFIED)
     Dates: start: 20040210, end: 20040210
  2. ALCOHOL (ETHANOL) [Suspect]
     Indication: DRUG USE FOR UNKNOWN INDICATION
     Dosage: MODERATE AMOUNT
  3. ZOLOFT [Concomitant]
  4. ACETAMINOPHEN [Concomitant]
  5. ALBUTEROL [Concomitant]

REACTIONS (2)
  - ALCOHOL POISONING [None]
  - OVERDOSE [None]
